FAERS Safety Report 25417231 (Version 3)
Quarter: 2025Q3

REPORT INFORMATION
  Report Type: Spontaneous
  Country: HK (occurrence: HK)
  Receive Date: 20250610
  Receipt Date: 20250930
  Transmission Date: 20251021
  Serious: Yes (Death, Other)
  Sender: ROCHE
  Company Number: HK-ROCHE-10000305801

PATIENT
  Sex: Male
  Weight: 8.5 kg

DRUGS (4)
  1. ENTRECTINIB [Suspect]
     Active Substance: ENTRECTINIB
     Indication: Congenital fibrosarcoma
     Route: 048
     Dates: start: 20240506, end: 20250318
  2. VINCRISTINE [Concomitant]
     Active Substance: VINCRISTINE
  3. ACTINOMYCIN D [Concomitant]
     Active Substance: DACTINOMYCIN
  4. CYCLOPHOSPHAMIDE [Concomitant]
     Active Substance: CYCLOPHOSPHAMIDE

REACTIONS (7)
  - Disease progression [Recovered/Resolved]
  - Metastases to lung [Unknown]
  - Drug resistance [Unknown]
  - Ill-defined disorder [Unknown]
  - Joint swelling [Unknown]
  - Therapy partial responder [Unknown]
  - Death [Fatal]

NARRATIVE: CASE EVENT DATE: 20250101
